FAERS Safety Report 8110628-3 (Version None)
Quarter: 2012Q1

REPORT INFORMATION
  Report Type: 
  Country: None (occurrence: None)
  Receive Date: 20120203
  Receipt Date: 20120201
  Transmission Date: 20120608
  Serious: No
  Sender: FDA-Public Use
  Company Number: US-PFIZER INC-2012028403

PATIENT
  Sex: Female
  Weight: 82 kg

DRUGS (5)
  1. KLONOPIN [Concomitant]
     Dosage: UNK
  2. DOXEPIN [Concomitant]
     Dosage: UNK
  3. ABILIFY [Concomitant]
     Dosage: UNK
  4. CHANTIX [Suspect]
     Indication: SMOKING CESSATION THERAPY
     Dosage: 0.5 MG, 1X/DAY
     Route: 048
     Dates: start: 20120127, end: 20120101
  5. CHANTIX [Suspect]
     Dosage: UNK
     Route: 048
     Dates: start: 20120101

REACTIONS (4)
  - ANXIETY [None]
  - TREMOR [None]
  - PALPITATIONS [None]
  - INSOMNIA [None]
